FAERS Safety Report 4389461-4 (Version None)
Quarter: 2004Q2

REPORT INFORMATION
  Report Type: 
  Country: None (occurrence: None)
  Receive Date: 20040630
  Receipt Date: 20040621
  Transmission Date: 20050107
  Serious: Yes (Other)
  Sender: FDA-Public Use
  Company Number: DE-JNJFOC-20040605463

PATIENT
  Age: 60 Year
  Sex: Male

DRUGS (2)
  1. REMICADE [Suspect]
     Dosage: 2 INFUSIONS RECEIVED AT THE END OF 2003
  2. METRONIDAZOLE [Suspect]

REACTIONS (4)
  - CATHETER RELATED INFECTION [None]
  - DRUG INEFFECTIVE [None]
  - DRUG INTERACTION [None]
  - SEPSIS [None]
